FAERS Safety Report 16685927 (Version 1)
Quarter: 2019Q3

REPORT INFORMATION
  Report Type: Spontaneous
  Country: US (occurrence: US)
  Receive Date: 20190809
  Receipt Date: 20190809
  Transmission Date: 20191004
  Serious: No
  Sender: FDA-Public Use
  Company Number: US-GLAXOSMITHKLINE-US2019140178

PATIENT
  Sex: Female

DRUGS (1)
  1. FLONASE ALLERGY RELIEF [Suspect]
     Active Substance: FLUTICASONE PROPIONATE
     Indication: PNEUMONIA
     Dosage: UNK
     Dates: start: 201905

REACTIONS (3)
  - Product use in unapproved indication [Unknown]
  - Anosmia [Unknown]
  - Ageusia [Unknown]
